FAERS Safety Report 17470105 (Version 10)
Quarter: 2020Q3

REPORT INFORMATION
  Report Type: Report from Study
  Country: HU (occurrence: HU)
  Receive Date: 20200227
  Receipt Date: 20200713
  Transmission Date: 20201102
  Serious: Yes (Death, Hospitalization)
  Sender: FDA-Public Use
  Company Number: HU-EISAI MEDICAL RESEARCH-EC-2020-070902

PATIENT
  Age: 77 Year
  Sex: Male
  Weight: 81 kg

DRUGS (28)
  1. METOTHYRIN [Concomitant]
     Dates: start: 20200120
  2. PEMBROLIZUMAB. [Suspect]
     Active Substance: PEMBROLIZUMAB
     Indication: NON-SMALL CELL LUNG CANCER METASTATIC
     Route: 041
     Dates: start: 20191107, end: 20191223
  3. KALDYUM [Concomitant]
     Active Substance: POTASSIUM CHLORIDE
     Dates: start: 201401
  4. FINPROS [Concomitant]
     Active Substance: FINASTERIDE
     Dates: start: 201101
  5. SINCUMAR [Concomitant]
     Dates: start: 201401, end: 20200228
  6. PROPRANOLOL [Concomitant]
     Active Substance: PROPRANOLOL HYDROCHLORIDE
     Dates: start: 20200113
  7. LENVATINIB [Suspect]
     Active Substance: LENVATINIB
     Dosage: DOSE REDUCED
     Route: 048
     Dates: start: 20200210
  8. PEMBROLIZUMAB. [Suspect]
     Active Substance: PEMBROLIZUMAB
     Route: 041
     Dates: start: 20200304
  9. ATORVASTATIN [Concomitant]
     Active Substance: ATORVASTATIN
     Dates: start: 200401
  10. BISOPROLOL [Concomitant]
     Active Substance: BISOPROLOL
     Dates: start: 201401
  11. TAMSUDIL [Concomitant]
     Active Substance: TAMSULOSIN HYDROCHLORIDE
     Dates: start: 201101
  12. CORDARONE [Concomitant]
     Active Substance: AMIODARONE HYDROCHLORIDE
     Dates: start: 200401
  13. RETAFYLLIN [Concomitant]
     Active Substance: THEOPHYLLINE
     Dates: start: 199401
  14. LORDESTIN [Concomitant]
     Dates: start: 20200129
  15. FUROSEMIDE. [Concomitant]
     Active Substance: FUROSEMIDE
     Dates: start: 201401
  16. LENVATINIB [Suspect]
     Active Substance: LENVATINIB
     Indication: NON-SMALL CELL LUNG CANCER METASTATIC
     Route: 048
     Dates: start: 20191107, end: 20200209
  17. NOOTROPIL [Concomitant]
     Active Substance: PIRACETAM
     Dates: start: 201401
  18. RENITEC [Concomitant]
     Dates: start: 199401
  19. MEGYRINA [Concomitant]
     Dates: start: 20200129
  20. MOFUDER [Concomitant]
     Active Substance: MOMETASONE FUROATE
     Dates: start: 20200129
  21. MILURIT [Concomitant]
     Active Substance: ALLOPURINOL
     Dates: start: 200401
  22. CO?ENALAPRIL [Concomitant]
     Active Substance: ENALAPRIL MALEATE\HYDROCHLOROTHIAZIDE
     Dates: start: 199401
  23. DIASIP [Concomitant]
     Dates: start: 20200129
  24. PEMBROLIZUMAB. [Suspect]
     Active Substance: PEMBROLIZUMAB
     Route: 041
     Dates: start: 20200120, end: 20200120
  25. PANTOPRAZOLE [Concomitant]
     Active Substance: PANTOPRAZOLE
     Dates: start: 201601
  26. HUMALOG MIX [Concomitant]
     Active Substance: INSULIN LISPRO
     Dates: start: 201501
  27. ELOCOM [Concomitant]
     Active Substance: MOMETASONE FUROATE
     Dates: start: 20191128, end: 20200128
  28. IMODIUM [Concomitant]
     Active Substance: LOPERAMIDE HYDROCHLORIDE
     Dates: start: 20200113

REACTIONS (1)
  - Fatigue [Not Recovered/Not Resolved]

NARRATIVE: CASE EVENT DATE: 20200131
